FAERS Safety Report 9535900 (Version 1)
Quarter: 2013Q2

REPORT INFORMATION
  Report Type: Spontaneous
  Country: US (occurrence: None)
  Receive Date: 20130507
  Receipt Date: 20130507
  Transmission Date: 20140414
  Serious: Yes (Other)
  Sender: FDA-Public Use
  Company Number: PHEH2013US001782

PATIENT
  Age: 12 Year
  Sex: Female

DRUGS (6)
  1. AFINITOR [Suspect]
     Indication: TUBEROUS SCLEROSIS
     Route: 048
     Dates: start: 20120523
  2. LAMOTRIGINE (LAMOTRIGINE) [Suspect]
  3. LEVOTHYROXINE (LEVOTHYROXINE) [Concomitant]
  4. SINGULAIR [Concomitant]
  5. LORATIDINE [Concomitant]
  6. LAMICTAL (LAMOTRIGINE) [Concomitant]

REACTIONS (2)
  - Convulsion [None]
  - Headache [None]
